FAERS Safety Report 17180202 (Version 2)
Quarter: 2020Q1

REPORT INFORMATION
  Report Type: Spontaneous
  Country: JP (occurrence: JP)
  Receive Date: 20191219
  Receipt Date: 20200212
  Transmission Date: 20200409
  Serious: Yes (Other)
  Sender: FDA-Public Use
  Company Number: JP-PFIZER INC-2019543905

PATIENT
  Age: 77 Year
  Sex: Male
  Weight: 54 kg

DRUGS (23)
  1. THEOPHYLLINE [Concomitant]
     Active Substance: THEOPHYLLINE ANHYDROUS
     Dosage: UNK
  2. ALENDRONATE [Concomitant]
     Active Substance: ALENDRONATE SODIUM
     Dosage: UNK
  3. LYRICA [Suspect]
     Active Substance: PREGABALIN
     Indication: NEURALGIA
     Dosage: 25 MG, 1X/DAY
     Route: 048
     Dates: start: 20190403, end: 20190405
  4. RISPERIDONE. [Concomitant]
     Active Substance: RISPERIDONE
     Dosage: UNK
  5. CARBOCISTEINE [Concomitant]
     Active Substance: CARBOCYSTEINE
     Dosage: UNK
  6. CALONAL [Concomitant]
     Active Substance: ACETAMINOPHEN
     Dosage: 1600 MG, DAILY
  7. SYMBICORT [Concomitant]
     Active Substance: BUDESONIDE\FORMOTEROL FUMARATE DIHYDRATE
     Dosage: UNK
  8. IDOMETHINE [Concomitant]
     Active Substance: INDOMETHACIN
     Dosage: UNK
     Route: 061
  9. PREDONINE [Concomitant]
     Active Substance: PREDNISOLONE
     Dosage: UNK
  10. CALONAL [Concomitant]
     Active Substance: ACETAMINOPHEN
     Dosage: 2200 MG, DAILY
  11. TRAMAL [Suspect]
     Active Substance: TRAMADOL
     Dosage: 50 MG, 2X/DAY
     Route: 048
     Dates: start: 20190330, end: 20190411
  12. JANUVIA [Concomitant]
     Active Substance: SITAGLIPTIN PHOSPHATE
     Dosage: UNK
  13. TRAMAL [Suspect]
     Active Substance: TRAMADOL
     Indication: NEURALGIA
     Dosage: 25 MG, 2X/DAY
     Route: 048
     Dates: start: 20190328, end: 20190329
  14. SPIRIVA [Concomitant]
     Active Substance: TIOTROPIUM BROMIDE MONOHYDRATE
     Dosage: UNK
  15. MECOBALAMIN [Concomitant]
     Active Substance: METHYLCOBALAMIN
     Dosage: UNK
  16. SENNOSIDE [Concomitant]
     Active Substance: SENNOSIDES
     Dosage: UNK
  17. BACTRAMIN [Concomitant]
     Active Substance: SULFAMETHOXAZOLE\TRIMETHOPRIM
     Dosage: UNK
  18. NATEGLINIDE. [Concomitant]
     Active Substance: NATEGLINIDE
     Dosage: UNK
  19. TULOBUTEROL [Concomitant]
     Active Substance: TULOBUTEROL
     Dosage: UNK
  20. BROTIZOLAM [Concomitant]
     Active Substance: BROTIZOLAM
     Dosage: UNK
  21. TOLAZOLINE [Concomitant]
     Active Substance: TOLAZOLINE
     Dosage: UNK
  22. ALLOPURINOL. [Concomitant]
     Active Substance: ALLOPURINOL
     Dosage: UNK
  23. LANSOPRAZOLE. [Concomitant]
     Active Substance: LANSOPRAZOLE
     Dosage: UNK

REACTIONS (5)
  - Chills [Unknown]
  - Urinary retention [Recovered/Resolved]
  - Pyrexia [Unknown]
  - Urinary tract infection [Unknown]
  - Dysuria [Not Recovered/Not Resolved]

NARRATIVE: CASE EVENT DATE: 201904
